FAERS Safety Report 7722925-1 (Version None)
Quarter: 2011Q3

REPORT INFORMATION
  Report Type: 
  Country: None (occurrence: None)
  Receive Date: 20110901
  Receipt Date: 20110823
  Transmission Date: 20111222
  Serious: Yes (Other)
  Sender: FDA-Public Use
  Company Number: US-SP-2011-07514

PATIENT
  Age: 73 Year
  Sex: Male

DRUGS (8)
  1. FISH OIL [Concomitant]
  2. ASPIRIN [Concomitant]
  3. ZOCOR [Concomitant]
  4. TRICOR [Concomitant]
  5. GLUCOSAMINE [Concomitant]
  6. WARFARIN SODIUM [Concomitant]
  7. THERACYS [Suspect]
     Indication: BLADDER CANCER
     Dosage: DOSES 1-4
     Route: 043
  8. THERACYS [Suspect]
     Dosage: DOSES 5-6
     Route: 043

REACTIONS (3)
  - HAEMATURIA [None]
  - DYSURIA [None]
  - INCORRECT DOSE ADMINISTERED [None]
